FAERS Safety Report 13251508 (Version 4)
Quarter: 2017Q2

REPORT INFORMATION
  Report Type: Spontaneous
  Country: JP (occurrence: JP)
  Receive Date: 20170220
  Receipt Date: 20170606
  Transmission Date: 20170830
  Serious: Yes (Death, Hospitalization)
  Sender: FDA-Public Use
  Company Number: JP-VIFOR (INTERNATIONAL) INC.-VIT-2017-00644

PATIENT
  Age: 76 Year
  Sex: Male
  Weight: 72 kg

DRUGS (9)
  1. CALTAN [Concomitant]
     Active Substance: CALCIUM CARBONATE
     Indication: HYPOCALCAEMIA
     Route: 048
     Dates: start: 20160128
  2. FOSRENOL [Concomitant]
     Active Substance: LANTHANUM CARBONATE
     Indication: HYPERPHOSPHATAEMIA
     Route: 048
     Dates: start: 20161004
  3. GASTROM [Concomitant]
     Active Substance: ECABET SODIUM
     Indication: GASTROOESOPHAGEAL REFLUX DISEASE
     Route: 048
     Dates: start: 20111220
  4. ROCALTROL [Concomitant]
     Active Substance: CALCITRIOL
     Indication: HYPOCALCAEMIA
     Route: 048
     Dates: start: 20151120
  5. FEBURIC [Concomitant]
     Active Substance: FEBUXOSTAT
     Indication: HYPERURICAEMIA
     Route: 048
     Dates: start: 20160519
  6. KETOPROFEN. [Concomitant]
     Active Substance: KETOPROFEN
     Indication: BACK PAIN
     Route: 062
     Dates: start: 20160709
  7. VELPHORO [Suspect]
     Active Substance: FERRIC OXYHYDROXIDE
     Indication: HYPERPHOSPHATAEMIA
     Route: 048
     Dates: start: 20160616, end: 20161004
  8. FUROSEMIDE. [Concomitant]
     Active Substance: FUROSEMIDE
     Indication: RENAL FAILURE
     Route: 048
     Dates: start: 20160324
  9. TAKECAB [Concomitant]
     Active Substance: VONOPRAZAN FUMURATE
     Indication: GASTROOESOPHAGEAL REFLUX DISEASE
     Route: 048
     Dates: start: 20151210

REACTIONS (25)
  - Autoimmune hepatitis [Fatal]
  - Peritonitis [Unknown]
  - Blood bilirubin increased [Unknown]
  - Cholelithiasis [Unknown]
  - Decreased appetite [Unknown]
  - Condition aggravated [Unknown]
  - Hepatic steatosis [Unknown]
  - Pancreatic steatosis [Unknown]
  - Hepatic cyst [Unknown]
  - Renal cyst [Unknown]
  - Diverticular perforation [Unknown]
  - General physical health deterioration [Unknown]
  - Pancreatic atrophy [Unknown]
  - Hyperbilirubinaemia [Unknown]
  - Chronic kidney disease [Unknown]
  - Malaise [Unknown]
  - Aortic calcification [Unknown]
  - Hepatitis [Fatal]
  - Cholecystitis chronic [Unknown]
  - Jaundice cholestatic [Unknown]
  - Renal atrophy [Unknown]
  - Jaundice [Fatal]
  - Gallbladder polyp [Unknown]
  - Renal ischaemia [Unknown]
  - Liver disorder [Fatal]

NARRATIVE: CASE EVENT DATE: 2016
